APPROVED DRUG PRODUCT: BENZONATATE
Active Ingredient: BENZONATATE
Strength: 150MG
Dosage Form/Route: CAPSULE;ORAL
Application: A211518 | Product #002
Applicant: ASCENT PHARMACEUTICALS INC
Approved: Feb 22, 2019 | RLD: No | RS: No | Type: DISCN